FAERS Safety Report 19261079 (Version 5)
Quarter: 2021Q4

REPORT INFORMATION
  Report Type: Spontaneous
  Country: US (occurrence: US)
  Receive Date: 20210515
  Receipt Date: 20211122
  Transmission Date: 20220303
  Serious: No
  Sender: FDA-Public Use
  Company Number: US-SA-SAC20210511001235

PATIENT
  Age: 50 Year
  Sex: Female

DRUGS (22)
  1. DUPIXENT [Suspect]
     Active Substance: DUPILUMAB
     Indication: Asthma
     Dosage: 200 MG, QOW
     Route: 058
     Dates: start: 20200128
  2. AZELASTINE [Concomitant]
     Active Substance: AZELASTINE
  3. AZELASTINE [Concomitant]
     Active Substance: AZELASTINE
  4. BUDESONIDE [Concomitant]
     Active Substance: BUDESONIDE
  5. DILTIAZEM [Concomitant]
     Active Substance: DILTIAZEM
  6. DILTIAZEM [Concomitant]
     Active Substance: DILTIAZEM
  7. DULERA [Concomitant]
     Active Substance: FORMOTEROL FUMARATE DIHYDRATE\MOMETASONE FUROATE
  8. LEVOTHYROXINE [Concomitant]
     Active Substance: LEVOTHYROXINE
     Indication: Hypothyroidism
  9. LISINOPRIL [Concomitant]
     Active Substance: LISINOPRIL
  10. METFORMIN [Concomitant]
     Active Substance: METFORMIN HYDROCHLORIDE
  11. NEXIUM I.V. [Concomitant]
     Active Substance: ESOMEPRAZOLE SODIUM
  12. OMEPRAZOLE [Concomitant]
     Active Substance: OMEPRAZOLE
  13. PANTOPRAZOLE [Concomitant]
     Active Substance: PANTOPRAZOLE
  14. VITAMIN D NOS [Concomitant]
     Active Substance: VITAMIN D NOS
  15. CEFDINIR [Concomitant]
     Active Substance: CEFDINIR
  16. CELECOXIB [Concomitant]
     Active Substance: CELECOXIB
  17. MONTELUKAST [Concomitant]
     Active Substance: MONTELUKAST SODIUM
  18. PREDNISONE [Concomitant]
     Active Substance: PREDNISONE
  19. DOXYCYCLINE [Concomitant]
     Active Substance: DOXYCYCLINE
  20. XIIDRA [Concomitant]
     Active Substance: LIFITEGRAST
  21. RIZATRIPTAN [Concomitant]
     Active Substance: RIZATRIPTAN
     Dosage: 10MG
  22. ONDANSETRON [Concomitant]
     Active Substance: ONDANSETRON
     Dosage: 4MG

REACTIONS (8)
  - Asthma [Not Recovered/Not Resolved]
  - Sinusitis [Unknown]
  - Illness [Not Recovered/Not Resolved]
  - Nasopharyngitis [Not Recovered/Not Resolved]
  - Injection site rash [Not Recovered/Not Resolved]
  - Injection site swelling [Not Recovered/Not Resolved]
  - Pain [Unknown]
  - Surgery [Unknown]

NARRATIVE: CASE EVENT DATE: 20210702
